FAERS Safety Report 5973526-7 (Version None)
Quarter: 2008Q4

REPORT INFORMATION
  Report Type: 
  Country: None (occurrence: None)
  Receive Date: 20081201
  Receipt Date: 20081120
  Transmission Date: 20090506
  Serious: Yes (Hospitalization, Other)
  Sender: FDA-Public Use
  Company Number: AT-AVENTIS-200820659GDDC

PATIENT
  Age: 37 Year
  Sex: Female

DRUGS (4)
  1. ARAVA [Suspect]
     Indication: POLYARTHRITIS
     Route: 048
     Dates: start: 20071102, end: 20080901
  2. TEGRETOL [Concomitant]
     Indication: EPILEPSY
  3. KEPPRA [Concomitant]
     Indication: EPILEPSY
  4. PREDNISOLONE [Concomitant]
     Indication: POLYARTHRITIS
     Route: 048

REACTIONS (1)
  - CONVULSION [None]
